FAERS Safety Report 4655816-3 (Version None)
Quarter: 2005Q2

REPORT INFORMATION
  Report Type: 
  Country: None (occurrence: None)
  Receive Date: 20050505
  Receipt Date: 20050415
  Transmission Date: 20051028
  Serious: Yes (Hospitalization, Other)
  Sender: FDA-Public Use
  Company Number: DE_050415688

PATIENT
  Age: 61 Year
  Sex: Male

DRUGS (4)
  1. ZYPREXA [Suspect]
     Indication: BIPOLAR DISORDER
     Dosage: 10 MG IN THE EVENING
     Dates: start: 20050401, end: 20050401
  2. CITALOPRAM HYDROBROMIDE [Concomitant]
  3. TRIAMTERENE AND HYDROCHLOROTHIAZIDE [Concomitant]
  4. METOHEXAL (METOPROLOL TARTRATE) [Concomitant]

REACTIONS (4)
  - CONGESTIVE CARDIOMYOPATHY [None]
  - DIZZINESS [None]
  - MALAISE [None]
  - VENTRICULAR TACHYCARDIA [None]
